FAERS Safety Report 6023558-8 (Version None)
Quarter: 2008Q4

REPORT INFORMATION
  Report Type: 
  Country: None (occurrence: None)
  Receive Date: 20081226
  Receipt Date: 20081226
  Transmission Date: 20090506
  Serious: No
  Sender: FDA-Public Use
  Company Number: None

PATIENT
  Sex: Female
  Weight: 47.6277 kg

DRUGS (2)
  1. LEVAQUIN [Suspect]
     Indication: URINARY TRACT INFECTION
     Dosage: LEVAQUIN 500MG / 1 A DAY PO
     Route: 048
     Dates: start: 20080925, end: 20080928
  2. CIPRO [Suspect]
     Indication: PROPHYLAXIS
     Dosage: CIPRO PO
     Route: 048
     Dates: start: 20040401

REACTIONS (23)
  - ANXIETY [None]
  - DEPRESSION [None]
  - DIARRHOEA [None]
  - DIZZINESS [None]
  - FIBROMYALGIA [None]
  - GASTROINTESTINAL DISORDER [None]
  - HYPOPHAGIA [None]
  - INSOMNIA [None]
  - INTESTINAL OBSTRUCTION [None]
  - IRRITABLE BOWEL SYNDROME [None]
  - MYODESOPSIA [None]
  - NAUSEA [None]
  - NERVOUS SYSTEM DISORDER [None]
  - NEUROPATHY PERIPHERAL [None]
  - PAIN [None]
  - PANIC ATTACK [None]
  - PARANOIA [None]
  - RASH [None]
  - TENDON INJURY [None]
  - TINNITUS [None]
  - TREMOR [None]
  - VERTIGO [None]
  - WEIGHT DECREASED [None]
